FAERS Safety Report 5674531-0 (Version None)
Quarter: 2008Q2

REPORT INFORMATION
  Report Type: 
  Country: None (occurrence: None)
  Receive Date: 20080303
  Receipt Date: 20070727
  Transmission Date: 20081010
  Serious: Yes (Hospitalization)
  Sender: FDA-Public Use
  Company Number: MK-6036509

PATIENT
  Age: 16 Year
  Sex: Male

DRUGS (3)
  1. AMNESTEEM [Suspect]
     Indication: ACNE
     Dosage: 20 MG;TWICE A DAY;ORAL ; 3 TIMES A DAY;ORAL ; 20 MG;EVERY OTHER DAY;ORAL
     Route: 048
     Dates: start: 20070130, end: 20070226
  2. AMNESTEEM [Suspect]
     Indication: ACNE
     Dosage: 20 MG;TWICE A DAY;ORAL ; 3 TIMES A DAY;ORAL ; 20 MG;EVERY OTHER DAY;ORAL
     Route: 048
     Dates: start: 20070227, end: 20070313
  3. AMNESTEEM [Suspect]
     Indication: ACNE
     Dosage: 20 MG;TWICE A DAY;ORAL ; 3 TIMES A DAY;ORAL ; 20 MG;EVERY OTHER DAY;ORAL
     Route: 048
     Dates: start: 20070727

REACTIONS (1)
  - VASCULITIS [None]
